FAERS Safety Report 8139541-2 (Version None)
Quarter: 2012Q1

REPORT INFORMATION
  Report Type: 
  Country: None (occurrence: None)
  Receive Date: 20120215
  Receipt Date: 20120210
  Transmission Date: 20120608
  Serious: Yes (Other)
  Sender: FDA-Public Use
  Company Number: US-PFIZER INC-2012036993

PATIENT

DRUGS (6)
  1. PLAVIX [Concomitant]
     Dosage: UNK
  2. EFFEXOR XR [Suspect]
     Dosage: 75 MG, 2X/DAY
     Route: 048
  3. METOPROLOL [Concomitant]
     Dosage: UNK
  4. ISOSORBIDE MONONITRATE [Concomitant]
     Dosage: UNK
  5. ENALAPRIL [Concomitant]
     Dosage: UNK
  6. FUROSEMIDE [Concomitant]
     Dosage: UNK

REACTIONS (1)
  - MYOCARDIAL INFARCTION [None]
